FAERS Safety Report 7224737-4 (Version None)
Quarter: 2011Q1

REPORT INFORMATION
  Report Type: 
  Country: None (occurrence: None)
  Receive Date: 20110104
  Receipt Date: 20101222
  Transmission Date: 20110831
  Serious: Yes (Death)
  Sender: FDA-Public Use
  Company Number: MPS1-1000422

PATIENT
  Age: 2 Year
  Sex: Female
  Weight: 13 kg

DRUGS (1)
  1. ALDURAZYME [Suspect]
     Indication: MUCOPOLYSACCHARIDOSIS I
     Dosage: , INTRAVENOUS
     Route: 042

REACTIONS (1)
  - PNEUMONIA [None]
